FAERS Safety Report 4280953-5 (Version None)
Quarter: 2004Q1

REPORT INFORMATION
  Report Type: 
  Country: None (occurrence: None)
  Receive Date: 20040127
  Receipt Date: 20040114
  Transmission Date: 20041129
  Serious: Yes (Life-Threatening)
  Sender: FDA-Public Use
  Company Number: 2004-UK-00034UK

PATIENT
  Age: 71 Year
  Sex: 0

DRUGS (4)
  1. MOBIC [Suspect]
     Indication: OSTEOARTHRITIS
     Dosage: 15 MG; PO
     Route: 048
     Dates: start: 20000911, end: 20040106
  2. ATARAX (HYDROXYZINE HYDROCHLORIDE) (NR) [Concomitant]
  3. DIAZEPAM [Concomitant]
  4. BENDROFLUAZIDE (BENDROFLUMETHIAZIDE) (NR) [Concomitant]

REACTIONS (2)
  - HAEMATEMESIS [None]
  - MELAENA [None]
